FAERS Safety Report 21008923 (Version 8)
Quarter: 2023Q1

REPORT INFORMATION
  Report Type: Spontaneous
  Country: JP (occurrence: JP)
  Receive Date: 20220627
  Receipt Date: 20230302
  Transmission Date: 20230417
  Serious: Yes (Hospitalization, Other)
  Sender: FDA-Public Use
  Company Number: JP-BRISTOL-MYERS SQUIBB COMPANY-2022-063612

PATIENT
  Age: 40 Year
  Sex: Female

DRUGS (3)
  1. YERVOY [Suspect]
     Active Substance: IPILIMUMAB
     Indication: Renal cell carcinoma
     Route: 041
  2. OPDIVO [Suspect]
     Active Substance: NIVOLUMAB
     Indication: Renal cell carcinoma
     Route: 041
  3. UNSPECIFIED INGREDIENT [Concomitant]
     Active Substance: UNSPECIFIED INGREDIENT
     Indication: Renal cell carcinoma

REACTIONS (6)
  - Malignant neoplasm progression [Unknown]
  - Neutropenia [Unknown]
  - Malaise [Unknown]
  - Drug eruption [Unknown]
  - Hepatic function abnormal [Unknown]
  - Adrenocorticotropic hormone deficiency [Recovering/Resolving]
